FAERS Safety Report 14667145 (Version 2)
Quarter: 2022Q3

REPORT INFORMATION
  Report Type: Spontaneous
  Country: US (occurrence: US)
  Receive Date: 20180322
  Receipt Date: 20220920
  Transmission Date: 20221027
  Serious: Yes (Disabling)
  Sender: FDA-Public Use
  Company Number: US-TEVA-2018-US-872095

PATIENT
  Sex: Female

DRUGS (1)
  1. DOCETAXEL [Suspect]
     Active Substance: DOCETAXEL
     Indication: Breast cancer female
     Dosage: EVERY 3 WEEKS, NUMBER OF CYCLES -04
     Dates: start: 20141013, end: 20150102

REACTIONS (1)
  - Alopecia [Unknown]
